FAERS Safety Report 8784936 (Version 2)
Quarter: 2013Q4

REPORT INFORMATION
  Report Type: Spontaneous
  Country: US (occurrence: US)
  Receive Date: 20120914
  Receipt Date: 20131101
  Transmission Date: 20140711
  Serious: No
  Sender: FDA-Public Use
  Company Number: US-009507513-1209USA004997

PATIENT
  Age: 71 Year
  Sex: Female

DRUGS (7)
  1. ZETIA [Suspect]
     Indication: BLOOD CHOLESTEROL
     Dosage: 10 MG, QD
     Route: 048
     Dates: start: 201207, end: 20120911
  2. LEVOTHYROXINE SODIUM [Concomitant]
  3. COUMADIN [Concomitant]
  4. ANABOLEX [Concomitant]
  5. TRAZODONE HYDROCHLORIDE [Concomitant]
  6. NEXIUM [Concomitant]
     Route: 048
  7. CELEBREX [Concomitant]

REACTIONS (3)
  - Cognitive disorder [Not Recovered/Not Resolved]
  - Pain [Not Recovered/Not Resolved]
  - Gait disturbance [Not Recovered/Not Resolved]
